FAERS Safety Report 9704867 (Version 1)
Quarter: 2013Q4

REPORT INFORMATION
  Report Type: Report from Study
  Country: US (occurrence: US)
  Receive Date: 20131122
  Receipt Date: 20131122
  Transmission Date: 20140711
  Serious: Yes (Death, Hospitalization)
  Sender: FDA-Public Use
  Company Number: US-OTSUKA-US-2013-12175

PATIENT
  Age: 28 Year
  Sex: Female
  Weight: 70 kg

DRUGS (6)
  1. BUSULFEX [Suspect]
     Indication: ACUTE LYMPHOCYTIC LEUKAEMIA
     Dosage: TEST DOSE
     Route: 042
     Dates: start: 20050718, end: 20050718
  2. FLUDARABINE [Suspect]
     Indication: ACUTE LYMPHOCYTIC LEUKAEMIA
     Dosage: UNK
     Route: 042
     Dates: start: 20050728, end: 20050728
  3. ALEMTUZUMAB [Suspect]
     Indication: ACUTE LYMPHOCYTIC LEUKAEMIA
     Dosage: DAY 1 ONLY
     Route: 042
     Dates: start: 20050728, end: 20050728
  4. CLONAZEPAM [Suspect]
     Indication: CONVULSION PROPHYLAXIS
     Dosage: UNK
  5. PREDNISONE [Concomitant]
     Dosage: UNK
     Route: 042
  6. MORPHINE SULFATE [Concomitant]
     Dosage: UNK
     Route: 042

REACTIONS (2)
  - Death [Fatal]
  - Hyperbilirubinaemia [Unknown]
